FAERS Safety Report 24152133 (Version 4)
Quarter: 2025Q4

REPORT INFORMATION
  Report Type: Report from Study
  Country: EU (occurrence: EU)
  Receive Date: 20240730
  Receipt Date: 20251223
  Transmission Date: 20260118
  Serious: Yes (Death, Hospitalization)
  Sender: KARYOPHARM THERAPEUTICS
  Company Number: EU-KARYOPHARM-2024KPT001357

PATIENT

DRUGS (17)
  1. SELINEXOR [Suspect]
     Active Substance: SELINEXOR
     Indication: Plasma cell myeloma
     Dosage: 100 MG 2X/WEEK
     Route: 048
     Dates: start: 202406, end: 2024
  2. SELINEXOR [Suspect]
     Active Substance: SELINEXOR
     Dosage: 3 DOSAGE FORM WEEKLY
     Route: 048
     Dates: start: 20240702, end: 202407
  3. SELINEXOR [Suspect]
     Active Substance: SELINEXOR
     Dosage: 40 MG 1/WEEK
     Route: 048
     Dates: start: 202407, end: 20250507
  4. VELCADE [Suspect]
     Active Substance: BORTEZOMIB
     Indication: Plasma cell myeloma
     Dosage: UNK 1/WEEK (EVERY TUESDAY)
     Route: 065
     Dates: start: 202407, end: 20250506
  5. NEXIUM [Concomitant]
     Active Substance: ESOMEPRAZOLE MAGNESIUM
     Indication: Irritable bowel syndrome
     Dosage: 40 MG
     Route: 048
  6. XGEVA [Concomitant]
     Active Substance: DENOSUMAB
     Indication: Osteoporosis
     Dosage: UNK
  7. JARDIANCE [Concomitant]
     Active Substance: EMPAGLIFLOZIN
     Indication: Blood glucose increased
     Dosage: 10 MG DAILY
  8. VALTREX [Concomitant]
     Active Substance: VALACYCLOVIR HYDROCHLORIDE
     Indication: Product used for unknown indication
     Dosage: UNK
  9. SULFAMETHOXAZOLE\TRIMETHOPRIM [Concomitant]
     Active Substance: SULFAMETHOXAZOLE\TRIMETHOPRIM
  10. FLUCOSTATIN [Concomitant]
  11. COLLYRIUM [BORIC ACID;SODIUM BORATE] [Concomitant]
  12. FLUCONAZOLE [Concomitant]
     Active Substance: FLUCONAZOLE
  13. XALATAN [Concomitant]
     Active Substance: LATANOPROST
  14. ASPIRIN [Concomitant]
     Active Substance: ASPIRIN
     Dosage: 100 MG
  15. XANAX [Concomitant]
     Active Substance: ALPRAZOLAM
     Dosage: 0.5 MG
  16. ROSUVASTATIN [Concomitant]
     Active Substance: ROSUVASTATIN
     Dosage: 10 MG
  17. ACETAMINOPHEN [Concomitant]
     Active Substance: ACETAMINOPHEN

REACTIONS (9)
  - Peripheral ischaemia [Fatal]
  - Plasma cell myeloma [Fatal]
  - Cardiac arrest [Fatal]
  - Haematocrit decreased [Fatal]
  - Abdominal discomfort [Recovered/Resolved]
  - Abdominal pain [Recovered/Resolved]
  - Diarrhoea [Recovered/Resolved]
  - Vomiting [Recovered/Resolved]
  - Weight decreased [Unknown]

NARRATIVE: CASE EVENT DATE: 20240702
